FAERS Safety Report 8605702-9 (Version None)
Quarter: 2012Q3

REPORT INFORMATION
  Report Type: 
  Country: None (occurrence: None)
  Receive Date: 20120820
  Receipt Date: 20120806
  Transmission Date: 20120928
  Serious: Yes (Hospitalization)
  Sender: FDA-Public Use
  Company Number: FR-MYLANLABS-2012S1016047

PATIENT
  Age: 82 Year
  Sex: Male

DRUGS (13)
  1. TRANSIPEG [Concomitant]
  2. LANTUS [Concomitant]
  3. ASPIRIN [Concomitant]
  4. ZOPICLONE [Concomitant]
  5. RAMIPRIL [Concomitant]
  6. ALFUZOSIN [Suspect]
     Indication: PROSTATIC ADENOMA
     Route: 048
     Dates: end: 20120609
  7. SINGULAIR [Concomitant]
  8. AVODART [Suspect]
     Indication: PROSTATIC ADENOMA
     Route: 048
     Dates: end: 20120609
  9. MOLSIDOMINE [Concomitant]
  10. OXAZEPAM [Concomitant]
  11. DIGOXIN [Concomitant]
  12. FUROSEMIDE [Suspect]
     Indication: HYPERTENSION
     Route: 048
     Dates: start: 20110101, end: 20120609
  13. MEMAMTINE HYDROCHLORIDE [Concomitant]

REACTIONS (2)
  - FALL [None]
  - ORTHOSTATIC HYPOTENSION [None]
